FAERS Safety Report 10789443 (Version 5)
Quarter: 2016Q4

REPORT INFORMATION
  Report Type: Spontaneous
  Country: US (occurrence: US)
  Receive Date: 20150212
  Receipt Date: 20161115
  Transmission Date: 20170206
  Serious: No
  Sender: FDA-Public Use
  Company Number: US-GLAXOSMITHKLINE-A1076024A

PATIENT
  Age: 65 Year
  Sex: Female

DRUGS (8)
  1. NASONEX [Concomitant]
     Active Substance: MOMETASONE FUROATE
  2. ATENOLOL. [Concomitant]
     Active Substance: ATENOLOL
  3. SINGULAIR [Concomitant]
     Active Substance: MONTELUKAST SODIUM
  4. XARELTO [Concomitant]
     Active Substance: RIVAROXABAN
  5. FLOVENT [Suspect]
     Active Substance: FLUTICASONE PROPIONATE
     Dosage: UNK
  6. SINGULAIR [Concomitant]
     Active Substance: MONTELUKAST SODIUM
  7. FLOVENT [Suspect]
     Active Substance: FLUTICASONE PROPIONATE
     Indication: BRONCHIAL HYPERREACTIVITY
     Dosage: 110 MCG, 1 PUFF(S), BID
     Route: 055
     Dates: start: 20160915
  8. FLOVENT [Suspect]
     Active Substance: FLUTICASONE PROPIONATE
     Indication: ASTHMA
     Dosage: UNK

REACTIONS (6)
  - Condition aggravated [Unknown]
  - Oropharyngeal pain [Recovering/Resolving]
  - Product quality issue [Unknown]
  - Respiratory tract irritation [Unknown]
  - Product odour abnormal [Unknown]
  - Throat irritation [Unknown]

NARRATIVE: CASE EVENT DATE: 20140604
